FAERS Safety Report 8690910 (Version 2)
Quarter: 2013Q4

REPORT INFORMATION
  Report Type: Spontaneous
  Country: US (occurrence: US)
  Receive Date: 20120730
  Receipt Date: 20131101
  Transmission Date: 20140711
  Serious: No
  Sender: FDA-Public Use
  Company Number: US-009507513-1207USA009789

PATIENT
  Sex: Male

DRUGS (4)
  1. ZOCOR [Suspect]
     Dosage: 80 MG, QD
     Route: 048
  2. LYRICA [Suspect]
     Dosage: 50 MG, QD
  3. METOPROLOL [Interacting]
     Dosage: 50 MG, QD
     Route: 048
  4. LISINOPRIL [Interacting]
     Dosage: 10 MG, QD
     Route: 048

REACTIONS (5)
  - Influenza like illness [Unknown]
  - Fatigue [Unknown]
  - Nausea [Unknown]
  - Drug interaction [Unknown]
  - Upper respiratory tract congestion [Unknown]
